FAERS Safety Report 9565512 (Version 1)
Quarter: 2013Q3

REPORT INFORMATION
  Report Type: Spontaneous
  Country: AU (occurrence: AU)
  Receive Date: 20130930
  Receipt Date: 20130930
  Transmission Date: 20140515
  Serious: Yes (Life-Threatening, Other)
  Sender: FDA-Public Use
  Company Number: AU-ROXANE LABORATORIES, INC.-2013-RO-01593RO

PATIENT
  Age: 64 Day
  Sex: 0

DRUGS (2)
  1. PROPRANOLOL [Suspect]
     Indication: HAEMANGIOMA
  2. PROPRANOLOL [Suspect]

REACTIONS (3)
  - Apnoea [Recovered/Resolved]
  - Heart rate decreased [Recovered/Resolved]
  - Hypotonia [Recovered/Resolved]
